FAERS Safety Report 23282611 (Version 1)
Quarter: 2023Q4

REPORT INFORMATION
  Report Type: Spontaneous
  Country: US (occurrence: US)
  Receive Date: 20231211
  Receipt Date: 20231211
  Transmission Date: 20240110
  Serious: No
  Sender: FDA-Public Use
  Company Number: US-GLAXOSMITHKLINE-USCH2023060957

PATIENT
  Age: 75 Year
  Sex: Male

DRUGS (1)
  1. VOLTAREN ARTHRITIS PAIN [Suspect]
     Active Substance: DICLOFENAC SODIUM
     Indication: Arthritis
     Dosage: UNK
     Dates: start: 20231201, end: 20231201

REACTIONS (3)
  - Burning sensation [Unknown]
  - Erythema [Unknown]
  - Thermal burn [Unknown]

NARRATIVE: CASE EVENT DATE: 20231202
